FAERS Safety Report 14824891 (Version 3)
Quarter: 2018Q2

REPORT INFORMATION
  Report Type: Report from Study
  Country: US (occurrence: US)
  Receive Date: 20180430
  Receipt Date: 20180525
  Transmission Date: 20180711
  Serious: Yes (Other)
  Sender: FDA-Public Use
  Company Number: US-ACADIA PHARMACEUTICALS INC.-ACA-2018-008564

PATIENT
  Sex: Male
  Weight: 79 kg

DRUGS (4)
  1. NUPLAZID [Suspect]
     Active Substance: PIMAVANSERIN TARTRATE
     Indication: PARKINSON^S DISEASE PSYCHOSIS
  2. NUPLAZID [Suspect]
     Active Substance: PIMAVANSERIN TARTRATE
     Indication: DELUSION
  3. NUPLAZID [Suspect]
     Active Substance: PIMAVANSERIN TARTRATE
     Indication: HALLUCINATION
     Dosage: 34 MG, QD
     Route: 065
  4. RIVASTIGMINE TARTRATE. [Concomitant]
     Active Substance: RIVASTIGMINE TARTRATE
     Indication: HALLUCINATION
     Dosage: 1.5 MG, BID
     Route: 065

REACTIONS (7)
  - Intentional self-injury [Not Recovered/Not Resolved]
  - Therapeutic response unexpected [Unknown]
  - Skin pressure mark [Unknown]
  - Delusion [Not Recovered/Not Resolved]
  - Therapeutic response decreased [Unknown]
  - Weight decreased [Not Recovered/Not Resolved]
  - Hallucination [Not Recovered/Not Resolved]
